FAERS Safety Report 10072652 (Version 1)
Quarter: 2014Q2

REPORT INFORMATION
  Report Type: Spontaneous
  Country: US (occurrence: US)
  Receive Date: 20140411
  Receipt Date: 20140411
  Transmission Date: 20141212
  Serious: No
  Sender: FDA-Public Use
  Company Number: US-PFIZER INC-2014097869

PATIENT
  Age: 64 Year
  Sex: Male

DRUGS (1)
  1. XALKORI [Suspect]
     Dosage: 250 MG, 2X/DAY (BID)
     Route: 048
     Dates: start: 20140317

REACTIONS (4)
  - Dizziness [Unknown]
  - Diarrhoea [Unknown]
  - Pollakiuria [Unknown]
  - Vitreous floaters [Unknown]
